FAERS Safety Report 5862080-6 (Version None)
Quarter: 2008Q3

REPORT INFORMATION
  Report Type: 
  Country: None (occurrence: None)
  Receive Date: 20080827
  Receipt Date: 20080827
  Transmission Date: 20090109
  Serious: Yes (Other)
  Sender: FDA-Public Use
  Company Number: None

PATIENT
  Age: 73 Year
  Sex: Male
  Weight: 98.8842 kg

DRUGS (1)
  1. ADVAIR DISKUS 100/50 [Suspect]
     Dosage: 2 PUFFS DAILY
     Dates: start: 20080710, end: 20080717

REACTIONS (2)
  - APHONIA [None]
  - VOCAL CORD DISORDER [None]
